FAERS Safety Report 24799803 (Version 1)
Quarter: 2025Q1

REPORT INFORMATION
  Report Type: Report from Study
  Country: US (occurrence: US)
  Receive Date: 20250102
  Receipt Date: 20250102
  Transmission Date: 20250408
  Serious: Yes (Death, Life-Threatening, Other)
  Sender: NOVARTIS
  Company Number: US-002147023-NVSC2024US230248

PATIENT
  Age: 75 Year
  Sex: Female

DRUGS (3)
  1. ZORTRESS [Suspect]
     Active Substance: EVEROLIMUS
     Indication: Liver transplant rejection
     Dosage: UNK, BID
     Route: 048
     Dates: start: 20210630
  2. ZORTRESS [Suspect]
     Active Substance: EVEROLIMUS
     Dosage: 0.75 MG, BID
     Route: 065
     Dates: start: 20240630
  3. MYFORTIC [Suspect]
     Active Substance: MYCOPHENOLATE SODIUM
     Indication: Liver transplant rejection
     Dosage: 360 MG, BID
     Route: 048
     Dates: start: 20200727

REACTIONS (3)
  - Death [Fatal]
  - Portal vein thrombosis [Fatal]
  - Pancreatic mass [Fatal]

NARRATIVE: CASE EVENT DATE: 20241113
